FAERS Safety Report 10062786 (Version 1)
Quarter: 2014Q2

REPORT INFORMATION
  Report Type: Spontaneous
  Country: US (occurrence: US)
  Receive Date: 20140407
  Receipt Date: 20140407
  Transmission Date: 20141212
  Serious: Yes (Other)
  Sender: FDA-Public Use
  Company Number: US-TEVA-472853USA

PATIENT
  Age: 79 Year
  Sex: Female

DRUGS (7)
  1. AZILECT [Suspect]
     Indication: PARKINSON^S DISEASE
  2. LEVODOPA [Concomitant]
     Indication: PARKINSON^S DISEASE
  3. ATENOLOL [Concomitant]
  4. VITAMINS [Concomitant]
  5. LOSARTAN [Concomitant]
  6. SYNTHROID [Concomitant]
  7. AMBIEN [Concomitant]

REACTIONS (3)
  - Hypotension [Not Recovered/Not Resolved]
  - Dizziness [Not Recovered/Not Resolved]
  - Nausea [Not Recovered/Not Resolved]
